FAERS Safety Report 17240221 (Version 1)
Quarter: 2020Q1

REPORT INFORMATION
  Report Type: Report from Study
  Country: None (occurrence: US)
  Receive Date: 20200107
  Receipt Date: 20200107
  Transmission Date: 20200409
  Serious: Yes (Other)
  Sender: FDA-Public Use
  Company Number: US-ABBVIE-20P-163-3218837-00

PATIENT
  Sex: Female

DRUGS (4)
  1. IMBRUVICA [Suspect]
     Active Substance: IBRUTINIB
     Indication: CHRONIC GRAFT VERSUS HOST DISEASE
     Route: 048
     Dates: start: 20191225
  2. IMBRUVICA [Suspect]
     Active Substance: IBRUTINIB
     Indication: STEM CELL TRANSPLANT
  3. IMBRUVICA [Suspect]
     Active Substance: IBRUTINIB
     Indication: BONE MARROW TRANSPLANT REJECTION
  4. PREDNISONE. [Concomitant]
     Active Substance: PREDNISONE
     Indication: PRODUCT USED FOR UNKNOWN INDICATION

REACTIONS (1)
  - Graft versus host disease in eye [Not Recovered/Not Resolved]
